FAERS Safety Report 21011700 (Version 6)
Quarter: 2025Q1

REPORT INFORMATION
  Report Type: Report from Study
  Country: MX (occurrence: MX)
  Receive Date: 20220627
  Receipt Date: 20250108
  Transmission Date: 20250409
  Serious: Yes (Hospitalization, Disabling, Other)
  Sender: NOVARTIS
  Company Number: MX-NOVARTISPH-NVSC2022MX120178

PATIENT
  Sex: Male
  Weight: 58 kg

DRUGS (3)
  1. TASIGNA [Suspect]
     Active Substance: NILOTINIB
     Indication: Chronic myeloid leukaemia
     Dosage: 2 DOSAGE FORM, Q12H
     Route: 048
  2. TASIGNA [Suspect]
     Active Substance: NILOTINIB
     Route: 048
  3. TASIGNA [Suspect]
     Active Substance: NILOTINIB
     Dosage: 2 DOSAGE FORM, QD, DAILY IN THE MORNING  AND 1 TABLET OF 200 MG IN THE EVENING
     Route: 048

REACTIONS (24)
  - Cardiovascular disorder [Unknown]
  - Gangrene [Unknown]
  - Skin burning sensation [Unknown]
  - Sensitive skin [Unknown]
  - Blister [Unknown]
  - Gait disturbance [Unknown]
  - Pain in extremity [Unknown]
  - Hypoaesthesia [Unknown]
  - Radiculopathy [Unknown]
  - Colitis [Unknown]
  - Neuropathy peripheral [Recovered/Resolved]
  - Herpes virus infection [Recovered/Resolved with Sequelae]
  - Pain [Unknown]
  - Arteriosclerosis coronary artery [Recovered/Resolved]
  - Diabetes mellitus [Recovered/Resolved]
  - Pigmentation disorder [Unknown]
  - Arterial disorder [Unknown]
  - Limb discomfort [Unknown]
  - Fatigue [Unknown]
  - Limb injury [Unknown]
  - Gastrointestinal inflammation [Unknown]
  - Skin discolouration [Unknown]
  - Gait inability [Unknown]
  - Malaise [Unknown]

NARRATIVE: CASE EVENT DATE: 20210101
